FAERS Safety Report 7037145-6 (Version None)
Quarter: 2010Q4

REPORT INFORMATION
  Report Type: 
  Country: None (occurrence: None)
  Receive Date: 20101011
  Receipt Date: 20100927
  Transmission Date: 20110411
  Serious: Yes (Hospitalization)
  Sender: FDA-Public Use
  Company Number: US-ELI_LILLY_AND_COMPANY-US201009002865

PATIENT
  Sex: Male

DRUGS (32)
  1. FORTEO [Suspect]
     Indication: OSTEOPOROSIS
     Dosage: 20 UG, DAILY (1/D)
     Dates: start: 20100826
  2. FUROSEMIDE [Concomitant]
     Dosage: 80 MG, 3/D
  3. POTASSIUM CHLORIDE [Concomitant]
     Dosage: UNK, 2/D
  4. METOLAZONE [Concomitant]
     Dosage: 2.5 MG, 3/W
  5. GABAPENTIN [Concomitant]
     Dosage: 300 MG, 3/D
  6. AMIDARONE [Concomitant]
     Indication: CARDIAC DISORDER
     Dosage: 200 MG, DAILY (1/D)
  7. METOPROLOL TARTRATE [Concomitant]
     Dosage: 25 MG, 2/D
  8. PRAVASTATIN [Concomitant]
     Dosage: 20 MG, DAILY (1/D)
  9. ASPIRIN [Concomitant]
  10. RECLAST [Concomitant]
     Route: 042
     Dates: start: 20100930, end: 20100930
  11. ACYCLOVIR SODIUM [Concomitant]
  12. CELEBREX [Concomitant]
     Dosage: 200 MG, 2/D
  13. NEXIUM [Concomitant]
     Dosage: 200 MG, DAILY (1/D)
  14. PROVIGIL [Concomitant]
     Indication: SLEEP APNOEA SYNDROME
     Dosage: 200 MG, DAILY (1/D)
  15. FINASTERIDE [Concomitant]
     Dosage: 5 MG, DAILY (1/D)
  16. OXYCODONE [Concomitant]
     Dosage: 80 MG, 4/D
  17. OXYCONTIN [Concomitant]
  18. TESTOSTERONE [Concomitant]
     Dosage: 200 MG, WEEKLY (1/W)
     Route: 030
  19. VITAMIN B-12 [Concomitant]
     Dosage: UNK, WEEKLY (1/W)
     Route: 030
  20. METFORMIN [Concomitant]
     Dosage: 500 MG, 2/D
  21. PATANASE [Concomitant]
     Dosage: UNK, 2/D
     Route: 045
  22. OMNARIS [Concomitant]
     Dosage: UNK, 2/D
     Route: 045
  23. SPIRIVA [Concomitant]
     Route: 055
  24. OTHER ANALGESICS AND ANTIPYRETICS [Concomitant]
     Indication: PAIN
     Route: 051
  25. VITAMIN D [Concomitant]
     Dosage: 2000 U, 2/D
  26. CO Q-10 [Concomitant]
     Dosage: 125 MG, DAILY (1/D)
  27. ACIDOPHILUS [Concomitant]
  28. CALCIUM PLUS D3 [Concomitant]
     Dosage: 600 MG, UNK
  29. MULTI-VITAMIN [Concomitant]
  30. LOVAZA [Concomitant]
  31. PERFOROMIST [Concomitant]
     Dosage: UNK, 2/D
  32. ACETYLCYSTEINE [Concomitant]
     Dosage: UNK, AS NEEDED

REACTIONS (8)
  - ABDOMINAL PAIN UPPER [None]
  - DECREASED APPETITE [None]
  - GAIT DISTURBANCE [None]
  - NAUSEA [None]
  - OSTEONECROSIS [None]
  - PAIN [None]
  - RASH [None]
  - VOMITING [None]
